FAERS Safety Report 19466040 (Version 3)
Quarter: 2021Q3

REPORT INFORMATION
  Report Type: Report from Study
  Country: US (occurrence: US)
  Receive Date: 20210626
  Receipt Date: 20210830
  Transmission Date: 20211014
  Serious: Yes (Other)
  Sender: FDA-Public Use
  Company Number: NVSC2021US135175

PATIENT
  Sex: Male

DRUGS (1)
  1. COSENTYX [Suspect]
     Active Substance: SECUKINUMAB
     Indication: PRODUCT USED FOR UNKNOWN INDICATION
     Dosage: UNK
     Route: 065

REACTIONS (6)
  - Limb discomfort [Unknown]
  - Haemorrhage [Unknown]
  - Stomatitis [Unknown]
  - Glossodynia [Unknown]
  - Chapped lips [Unknown]
  - Mouth haemorrhage [Unknown]
